FAERS Safety Report 6331604-7 (Version None)
Quarter: 2009Q3

REPORT INFORMATION
  Report Type: 
  Country: None (occurrence: None)
  Receive Date: 20090827
  Receipt Date: 20090818
  Transmission Date: 20100115
  Serious: Yes (Hospitalization)
  Sender: FDA-Public Use
  Company Number: PHHY2009AU34498

PATIENT
  Sex: Female

DRUGS (5)
  1. CLOZARIL [Suspect]
     Dosage: UNK
     Dates: start: 19940912
  2. CLOZARIL [Suspect]
     Dosage: 700 MG
  3. CLOZARIL [Suspect]
     Dosage: 650 MG
  4. CLOZARIL [Suspect]
     Dosage: 500 MG
  5. CLOZARIL [Suspect]
     Dosage: 700 MG

REACTIONS (1)
  - MENTAL DISORDER [None]
